FAERS Safety Report 6964008-4 (Version None)
Quarter: 2010Q3

REPORT INFORMATION
  Report Type: 
  Country: None (occurrence: None)
  Receive Date: 20100902
  Receipt Date: 20100902
  Transmission Date: 20110219
  Serious: No
  Sender: FDA-Public Use
  Company Number: None

PATIENT
  Age: 52 Year
  Sex: Male
  Weight: 74.8435 kg

DRUGS (2)
  1. LEVAQUIN [Suspect]
     Indication: HYDROCELE
     Dosage: 500 MG 1/DAY PO
     Route: 048
     Dates: start: 20100506, end: 20100606
  2. NAPROXEN [Suspect]
     Dosage: 2/DAY PO
     Route: 048
     Dates: start: 20100506, end: 20100606

REACTIONS (2)
  - PAIN IN EXTREMITY [None]
  - PARAESTHESIA [None]
